FAERS Safety Report 12487092 (Version 1)
Quarter: 2016Q2

REPORT INFORMATION
  Report Type: Report from Study
  Country: US (occurrence: US)
  Receive Date: 20160622
  Receipt Date: 20160622
  Transmission Date: 20160815
  Serious: Yes (Other)
  Sender: FDA-Public Use
  Company Number: US-AMGEN-USASL2016078651

PATIENT
  Age: 56 Year
  Sex: Female

DRUGS (3)
  1. DEXAMETHASONE. [Concomitant]
     Active Substance: DEXAMETHASONE
     Dosage: UNK
     Dates: start: 20151026
  2. KYPROLIS [Suspect]
     Active Substance: CARFILZOMIB
     Indication: PLASMA CELL MYELOMA
     Dosage: UNK
     Route: 065
     Dates: start: 20151026, end: 20160410
  3. REVLIMID [Concomitant]
     Active Substance: LENALIDOMIDE
     Dosage: UNK
     Dates: start: 201512

REACTIONS (12)
  - Blood immunoglobulin G decreased [Unknown]
  - Electrocardiogram QT prolonged [Unknown]
  - Blood immunoglobulin A decreased [Unknown]
  - Sinus arrhythmia [Unknown]
  - Blood immunoglobulin M decreased [Unknown]
  - Bundle branch block right [Unknown]
  - Mitral valve incompetence [Unknown]
  - Electrocardiogram T wave abnormal [Unknown]
  - Tricuspid valve incompetence [Unknown]
  - Feeling abnormal [Unknown]
  - Left atrial dilatation [Unknown]
  - Light chain analysis increased [Unknown]

NARRATIVE: CASE EVENT DATE: 20160426
